FAERS Safety Report 6432224-6 (Version None)
Quarter: 2009Q4

REPORT INFORMATION
  Report Type: 
  Country: None (occurrence: None)
  Receive Date: 20091109
  Receipt Date: 20091029
  Transmission Date: 20100525
  Serious: Yes (Hospitalization)
  Sender: FDA-Public Use
  Company Number: US-JNJFOC-20091100247

PATIENT
  Sex: Female
  Weight: 43.09 kg

DRUGS (1)
  1. REMICADE [Suspect]
     Indication: COLITIS ULCERATIVE
     Dosage: AROUND 3 TREATMENTS, JAN, FEB AND MAR-2009
     Route: 042
     Dates: start: 20090101, end: 20090101

REACTIONS (1)
  - NEOPLASM [None]
